FAERS Safety Report 17215216 (Version 1)
Quarter: 2019Q4

REPORT INFORMATION
  Report Type: Spontaneous
  Country: US (occurrence: US)
  Receive Date: 20191230
  Receipt Date: 20191230
  Transmission Date: 20200122
  Serious: Yes (Other)
  Sender: FDA-Public Use
  Company Number: US-BECTON DICKINSON-2019BDN00446

PATIENT
  Sex: Male

DRUGS (4)
  1. DOT 4FR POWERMIDLINE MAX (DEVICE) [Suspect]
     Active Substance: DEVICE
  2. CHLORAPREP WITH TINT [Suspect]
     Active Substance: CHLORHEXIDINE GLUCONATE\ISOPROPYL ALCOHOL
     Indication: INFECTION PROPHYLAXIS
     Route: 061
  3. CHLORAPREP [Suspect]
     Active Substance: CHLORHEXIDINE GLUCONATE\ISOPROPYL ALCOHOL
     Indication: INFECTION PROPHYLAXIS
     Route: 061
  4. LIDOCAINE AMPOULE [Suspect]
     Active Substance: LIDOCAINE

REACTIONS (2)
  - Foreign body [Not Recovered/Not Resolved]
  - Device breakage [Not Recovered/Not Resolved]
